FAERS Safety Report 6840994-8 (Version None)
Quarter: 2010Q3

REPORT INFORMATION
  Report Type: 
  Country: None (occurrence: None)
  Receive Date: 20100714
  Receipt Date: 20070619
  Transmission Date: 20110219
  Serious: No
  Sender: FDA-Public Use
  Company Number: US-PFIZER INC-2007052114

PATIENT
  Sex: Female
  Weight: 65 kg

DRUGS (4)
  1. CHANTIX [Suspect]
     Indication: SMOKING CESSATION THERAPY
     Dates: start: 20070101, end: 20070601
  2. ALL OTHER THERAPEUTIC PRODUCTS [Concomitant]
  3. CHOLESTEROL- AND TRIGLYCERIDE REDUCERS [Concomitant]
  4. ALEVE (CAPLET) [Concomitant]

REACTIONS (5)
  - ABDOMINAL DISTENSION [None]
  - DYSGEUSIA [None]
  - FLATULENCE [None]
  - NAUSEA [None]
  - SKIN ODOUR ABNORMAL [None]
